FAERS Safety Report 18767196 (Version 1)
Quarter: 2021Q1

REPORT INFORMATION
  Report Type: Spontaneous
  Country: US (occurrence: US)
  Receive Date: 20210120
  Receipt Date: 20210120
  Transmission Date: 20210419
  Serious: Yes (Hospitalization, Other)
  Sender: FDA-Public Use
  Company Number: None

PATIENT
  Sex: Female

DRUGS (3)
  1. PRENATAL [Concomitant]
     Active Substance: VITAMINS
     Dates: start: 20180627
  2. VITAMIN D [Concomitant]
     Active Substance: VITAMIN D NOS
     Dates: start: 20180627
  3. GLATIRAMER [Suspect]
     Active Substance: GLATIRAMER
     Indication: MULTIPLE SCLEROSIS
     Dosage: ?          OTHER FREQUENCY:3 TIMES A WEEK;?
     Route: 058
     Dates: start: 20200828

REACTIONS (2)
  - Device malfunction [None]
  - Device issue [None]
